FAERS Safety Report 20150781 (Version 1)
Quarter: 2021Q4

REPORT INFORMATION
  Report Type: Spontaneous
  Country: CI (occurrence: CI)
  Receive Date: 20211206
  Receipt Date: 20211206
  Transmission Date: 20220303
  Serious: Yes (Other)
  Sender: FDA-Public Use
  Company Number: CI-NOVARTISPH-NVSC2021CI272801

PATIENT
  Age: 60 Year
  Sex: Female
  Weight: 68 kg

DRUGS (1)
  1. METFORMIN HYDROCHLORIDE\VILDAGLIPTIN [Suspect]
     Active Substance: METFORMIN HYDROCHLORIDE\VILDAGLIPTIN
     Indication: Type 2 diabetes mellitus
     Dosage: 50 MG, BID
     Route: 048

REACTIONS (4)
  - Renal failure [Recovering/Resolving]
  - Oliguria [Recovering/Resolving]
  - Oedema peripheral [Recovering/Resolving]
  - Swelling face [Recovering/Resolving]
